FAERS Safety Report 21148355 (Version 1)
Quarter: 2022Q3

REPORT INFORMATION
  Report Type: Spontaneous
  Country: US (occurrence: US)
  Receive Date: 20220729
  Receipt Date: 20220729
  Transmission Date: 20221026
  Serious: No
  Sender: FDA-Public Use
  Company Number: US-PFIZER INC-202201014708

PATIENT
  Age: 61 Year
  Sex: Female
  Weight: 114.31 kg

DRUGS (1)
  1. PAXLOVID [Suspect]
     Active Substance: NIRMATRELVIR\RITONAVIR
     Indication: COVID-19 treatment
     Dosage: TWO 150MG NIRMATRELVIR TABLETS AND ONE 100MG RITONAVIR TABLET TWICE DAILY FOR 5 DAYS
     Route: 048
     Dates: start: 20220726, end: 20220726

REACTIONS (5)
  - Dysgeusia [Not Recovered/Not Resolved]
  - Nausea [Not Recovered/Not Resolved]
  - Abdominal discomfort [Not Recovered/Not Resolved]
  - Feeling abnormal [Unknown]
  - Retching [Unknown]

NARRATIVE: CASE EVENT DATE: 20220726
